FAERS Safety Report 5428949-1 (Version None)
Quarter: 2007Q3

REPORT INFORMATION
  Report Type: 
  Country: None (occurrence: None)
  Receive Date: 20070827
  Receipt Date: 20070810
  Transmission Date: 20080115
  Serious: Yes (Hospitalization)
  Sender: FDA-Public Use
  Company Number: US-1163869

PATIENT
  Sex: Male

DRUGS (2)
  1. VIGAMOX [Suspect]
     Dosage: (OPHTHALMIC)
     Route: 047
  2. TOBRAMYCIN SULFATE [Suspect]
     Dosage: (OPHTHALMIC)
     Route: 047

REACTIONS (2)
  - ANAPHYLACTIC REACTION [None]
  - ANGIOEDEMA [None]
